FAERS Safety Report 6397411-4 (Version None)
Quarter: 2009Q4

REPORT INFORMATION
  Report Type: 
  Country: None (occurrence: None)
  Receive Date: 20091012
  Receipt Date: 20090929
  Transmission Date: 20100525
  Serious: Yes (Hospitalization)
  Sender: FDA-Public Use
  Company Number: PHEH2009US12511

PATIENT
  Sex: Male
  Weight: 79.365 kg

DRUGS (1)
  1. GLEEVEC [Suspect]
     Indication: LYMPHOPROLIFERATIVE DISORDER
     Dosage: 400 MG, DAILY
     Route: 048
     Dates: start: 20090901, end: 20090929

REACTIONS (1)
  - GASTROINTESTINAL DISORDER [None]
